FAERS Safety Report 4686927-4 (Version None)
Quarter: 2005Q2

REPORT INFORMATION
  Report Type: 
  Country: None (occurrence: None)
  Receive Date: 20050608
  Receipt Date: 20050526
  Transmission Date: 20051028
  Serious: Yes (Other)
  Sender: FDA-Public Use
  Company Number: 200505IM000199

PATIENT
  Age: 47 Year
  Sex: Female
  Weight: 66.2252 kg

DRUGS (3)
  1. INFERGEN [Suspect]
     Indication: HEPATITIS C
     Dosage: SEE IMAGE
     Route: 058
     Dates: start: 20050325, end: 20050501
  2. INFERGEN [Suspect]
     Indication: HEPATITIS C
     Dosage: SEE IMAGE
     Route: 058
     Dates: start: 20050501
  3. RIBAVIRIN [Concomitant]

REACTIONS (5)
  - BLOOD TRIGLYCERIDES INCREASED [None]
  - PLATELET COUNT DECREASED [None]
  - RETINAL EXUDATES [None]
  - RETINOPATHY [None]
  - WHITE BLOOD CELL COUNT DECREASED [None]
